FAERS Safety Report 15802433 (Version 1)
Quarter: 2019Q1

REPORT INFORMATION
  Report Type: Spontaneous
  Country: US (occurrence: US)
  Receive Date: 20190104
  Receipt Date: 20190104
  Transmission Date: 20190417
  Serious: No
  Sender: FDA-Public Use
  Company Number: None

PATIENT

DRUGS (1)
  1. HUMULIN R [Suspect]
     Active Substance: INSULIN HUMAN

REACTIONS (4)
  - Incorrect drug administration rate [None]
  - Blood glucose decreased [None]
  - Accidental overdose [None]
  - Dose calculation error [None]
